FAERS Safety Report 5448173-6 (Version None)
Quarter: 2007Q3

REPORT INFORMATION
  Report Type: 
  Country: None (occurrence: None)
  Receive Date: 20070905
  Receipt Date: 20070820
  Transmission Date: 20080115
  Serious: Yes (Life-Threatening, Hospitalization)
  Sender: FDA-Public Use
  Company Number: GXKR2007NL07134

PATIENT
  Age: 44 Year
  Sex: Female

DRUGS (9)
  1. NORTRIPTYLINE HCL [Suspect]
  2. PAROXETINE [Suspect]
  3. MIDAZOLAM HCL [Suspect]
     Indication: LUMBAR PUNCTURE
     Dosage: INTRAVENOUS
     Route: 042
  4. OLANZAPINE [Concomitant]
  5. OXAZEPAM [Concomitant]
  6. TEMAZEPAM [Concomitant]
  7. ATENOLOL [Concomitant]
  8. IRBESARTAN [Concomitant]
  9. HYDROCHLOROTHIAZIDE [Concomitant]

REACTIONS (16)
  - ATRIOVENTRICULAR BLOCK FIRST DEGREE [None]
  - BLOOD PRESSURE DECREASED [None]
  - BUNDLE BRANCH BLOCK RIGHT [None]
  - COMA [None]
  - DRUG INTERACTION [None]
  - DRUG LEVEL ABOVE THERAPEUTIC [None]
  - DYSKINESIA [None]
  - ELECTROCARDIOGRAM PQ INTERVAL PROLONGED [None]
  - ELECTROCARDIOGRAM QRS COMPLEX PROLONGED [None]
  - GRAND MAL CONVULSION [None]
  - IATROGENIC INJURY [None]
  - PNEUMONIA [None]
  - POISONING [None]
  - RESPIRATORY FAILURE [None]
  - SINUS TACHYCARDIA [None]
  - SNORING [None]
